FAERS Safety Report 8325332 (Version 5)
Quarter: 2015Q1

REPORT INFORMATION
  Report Type: Report from Study
  Country: US (occurrence: US)
  Receive Date: 20120106
  Receipt Date: 20150322
  Transmission Date: 20150721
  Serious: Yes (Death)
  Sender: FDA-Public Use
  Company Number: US-ROCHE-1027872

PATIENT
  Age: 64 Year
  Sex: Female
  Weight: 83.99 kg

DRUGS (28)
  1. HERCEPTIN [Suspect]
     Active Substance: TRASTUZUMAB
     Dosage: THERAPY DATES: 16/APR/2007, 07/MAY/2007, 29/MAY/2007, 18/JUN/2007, 09/JUL/2007, 30/JUL/2007, 20/AUG/
     Route: 042
  2. AVASTIN [Suspect]
     Active Substance: BEVACIZUMAB
     Indication: BREAST CANCER
     Route: 042
     Dates: start: 20091015
  3. ZOMETA [Concomitant]
     Active Substance: ZOLEDRONIC ACID
     Indication: BREAST CANCER METASTATIC
     Route: 065
  4. DURAGESIC [Concomitant]
     Active Substance: FENTANYL
  5. MARINOL (UNITED STATES) [Concomitant]
  6. CYTOXAN [Concomitant]
     Active Substance: CYCLOPHOSPHAMIDE
     Indication: BREAST CANCER
     Route: 042
  7. DEXAMETHASONE. [Concomitant]
     Active Substance: DEXAMETHASONE
     Route: 042
  8. ANZEMET [Concomitant]
     Active Substance: DOLASETRON MESYLATE
     Route: 042
  9. ZANTAC [Concomitant]
     Active Substance: RANITIDINE HYDROCHLORIDE
     Route: 065
  10. HEPARIN FLUSH [Concomitant]
     Dosage: 5 CC
     Route: 065
  11. CALCIUM GLUCONATE. [Concomitant]
     Active Substance: CALCIUM GLUCONATE
  12. HERCEPTIN [Suspect]
     Active Substance: TRASTUZUMAB
     Indication: BREAST CANCER METASTATIC
     Route: 042
     Dates: start: 20061016
  13. GEMZAR [Concomitant]
     Active Substance: GEMCITABINE HYDROCHLORIDE
     Indication: BREAST CANCER
     Route: 042
  14. TAXOL [Concomitant]
     Active Substance: PACLITAXEL
     Indication: BREAST CANCER
     Route: 042
  15. BENADRYL [Concomitant]
     Active Substance: DIPHENHYDRAMINE HYDROCHLORIDE
     Dosage: 285/50 MG
     Route: 065
  16. MAGNESIUM SULPHATE [Concomitant]
     Active Substance: MAGNESIUM SULFATE
     Route: 065
  17. HERCEPTIN [Suspect]
     Active Substance: TRASTUZUMAB
     Indication: METASTASES TO BONE
     Dosage: THERAPY DATES: 09/JUL/2009, 06/AUG/2009
     Route: 042
  18. PROCRIT [Concomitant]
     Active Substance: ERYTHROPOIETIN
  19. KYTRIL [Concomitant]
     Active Substance: GRANISETRON HYDROCHLORIDE
     Route: 065
  20. ATROPINE [Concomitant]
     Active Substance: ATROPINE
     Dosage: 0.2/0.4 MG
     Route: 065
  21. ATIVAN [Concomitant]
     Active Substance: LORAZEPAM
  22. KAPIDEX [Concomitant]
     Active Substance: DEXLANSOPRAZOLE
  23. ALOXI [Concomitant]
     Active Substance: PALONOSETRON HYDROCHLORIDE
     Route: 042
  24. EMEND [Concomitant]
     Active Substance: APREPITANT
     Route: 042
  25. ZOFRAN [Concomitant]
     Active Substance: ONDANSETRON HYDROCHLORIDE
     Route: 065
  26. ADRIAMYCIN [Concomitant]
     Active Substance: DOXORUBICIN HYDROCHLORIDE
     Indication: BREAST CANCER
     Route: 042
  27. ABRAXANE [Concomitant]
     Active Substance: PACLITAXEL
     Route: 065
  28. TYLENOL [Concomitant]
     Active Substance: ACETAMINOPHEN
     Route: 048

REACTIONS (4)
  - Death [Fatal]
  - Nausea [Unknown]
  - Vomiting [Unknown]
  - Fatigue [Unknown]

NARRATIVE: CASE EVENT DATE: 20100916
